FAERS Safety Report 7055298-0 (Version None)
Quarter: 2010Q4

REPORT INFORMATION
  Report Type: 
  Country: None (occurrence: None)
  Receive Date: 20101020
  Receipt Date: 20101020
  Transmission Date: 20110411
  Serious: Yes (Hospitalization)
  Sender: FDA-Public Use
  Company Number: None

PATIENT
  Age: 39 Year
  Sex: Female
  Weight: 43.5453 kg

DRUGS (2)
  1. PROPYLTHIOURACIL [Suspect]
     Indication: BASEDOW'S DISEASE
     Dosage: 50MG 2X DAILY
     Dates: start: 20060524, end: 20090420
  2. PROPYLTHIOURACIL [Suspect]
     Indication: HYPOTHYROIDISM
     Dosage: 50MG 2X DAILY
     Dates: start: 20060524, end: 20090420

REACTIONS (6)
  - ARTHRITIS [None]
  - CHEST PAIN [None]
  - GASTROINTESTINAL INFLAMMATION [None]
  - LUPUS-LIKE SYNDROME [None]
  - NODULE [None]
  - OSTEITIS [None]
